FAERS Safety Report 17557540 (Version 1)
Quarter: 2020Q1

REPORT INFORMATION
  Report Type: Spontaneous
  Country: DK (occurrence: DK)
  Receive Date: 20200318
  Receipt Date: 20200318
  Transmission Date: 20200409
  Serious: Yes (Hospitalization)
  Sender: FDA-Public Use
  Company Number: DK-JNJFOC-20200323122

PATIENT
  Age: 61 Year
  Sex: Male

DRUGS (8)
  1. RIVAROXABAN [Suspect]
     Active Substance: RIVAROXABAN
     Indication: DEEP VEIN THROMBOSIS
     Dosage: STYRKE: 20 MG.
     Route: 048
     Dates: start: 20190701
  2. CALCIUM [Concomitant]
     Active Substance: CALCIUM
     Indication: MINERAL SUPPLEMENTATION
     Dosage: STYRKE: 400 MG + 38 MIKROGRAM
     Dates: start: 20150929
  3. BENEPALI [Concomitant]
     Active Substance: ETANERCEPT
     Indication: PSORIATIC ARTHROPATHY
     Dosage: STYRKE: 50 MG.
     Route: 058
     Dates: start: 20170818
  4. PANTOPRAZOLE [Concomitant]
     Active Substance: PANTOPRAZOLE
     Indication: GASTROOESOPHAGEAL REFLUX DISEASE
     Dosage: STYRKE: 40 MG. DOSIS: 1 TABL. EFTER BEHOV, MAX 1X DGL
     Route: 048
     Dates: start: 20170112
  5. PANODIL [Concomitant]
     Active Substance: ACETAMINOPHEN
     Indication: PAIN
     Dosage: STYRKE: 500 MG.
     Route: 048
     Dates: start: 20190604
  6. BRENTACORT [Concomitant]
     Indication: ECZEMA INFECTED
     Dosage: STYRKE: 20+10 MG/G
     Route: 003
     Dates: start: 20160708
  7. IBUMETIN [Concomitant]
     Active Substance: IBUPROFEN
     Indication: ARTHRITIS
     Dosage: STYRKE: 600 MG.?DOSIS: 1 TABL. EFTER BEHOV, MAX 2X DGL.
     Route: 048
     Dates: start: 20140526
  8. BETAMETHASONE VALERATE. [Concomitant]
     Active Substance: BETAMETHASONE VALERATE
     Indication: PSORIASIS
     Dosage: 2 DF, QD
     Route: 003
     Dates: start: 20160708

REACTIONS (1)
  - Deep vein thrombosis [Recovered/Resolved]

NARRATIVE: CASE EVENT DATE: 20200106
